FAERS Safety Report 12255097 (Version 1)
Quarter: 2016Q2

REPORT INFORMATION
  Report Type: Spontaneous
  Country: US (occurrence: US)
  Receive Date: 20160411
  Receipt Date: 20160411
  Transmission Date: 20160815
  Serious: Yes (Hospitalization, Other)
  Sender: FDA-Public Use
  Company Number: ADR-2014-01203

PATIENT
  Sex: Male

DRUGS (3)
  1. BACLOFEN. [Suspect]
     Active Substance: BACLOFEN
     Route: 037
  2. BUPIVACAINE. [Suspect]
     Active Substance: BUPIVACAINE
     Dosage: 3.174 UNITS/DAY
     Route: 037
  3. CLONIDINE. [Suspect]
     Active Substance: CLONIDINE
     Dosage: 15.87 MCG/DAY
     Route: 037

REACTIONS (5)
  - Pain [Recovered/Resolved]
  - Medical device site erosion [Recovered/Resolved]
  - Medical device site erythema [Recovered/Resolved]
  - Implant site pain [Recovered/Resolved]
  - Implant site infection [Recovered/Resolved]
